FAERS Safety Report 23979461 (Version 2)
Quarter: 2024Q3

REPORT INFORMATION
  Report Type: Spontaneous
  Country: US (occurrence: None)
  Receive Date: 20240615
  Receipt Date: 20240716
  Transmission Date: 20241017
  Serious: No
  Sender: ASTRAZENECA
  Company Number: 2024A136349

PATIENT
  Sex: Female

DRUGS (1)
  1. ANIFROLUMAB [Suspect]
     Active Substance: ANIFROLUMAB
     Indication: Systemic lupus erythematosus
     Route: 041

REACTIONS (4)
  - Lupus nephritis [Recovered/Resolved]
  - Musculoskeletal disorder [Recovered/Resolved]
  - Mucocutaneous disorder [Recovered/Resolved]
  - Proteinuria [Recovered/Resolved]
